FAERS Safety Report 5217775-4 (Version None)
Quarter: 2007Q1

REPORT INFORMATION
  Report Type: 
  Country: None (occurrence: None)
  Receive Date: 20061130
  Receipt Date: 20060821
  Transmission Date: 20070707
  Serious: Yes (Hospitalization, Other)
  Sender: FDA-Public Use
  Company Number: US200608004619

PATIENT
  Age: 35 Year
  Sex: Male

DRUGS (1)
  1. ZYPREXA [Suspect]
     Dosage: 15 MG, 20 MG

REACTIONS (3)
  - DIABETES MELLITUS [None]
  - LOSS OF CONSCIOUSNESS [None]
  - PANCREATITIS [None]
